FAERS Safety Report 14434480 (Version 1)
Quarter: 2018Q1

REPORT INFORMATION
  Report Type: Report from Study
  Country: ES (occurrence: ES)
  Receive Date: 20180124
  Receipt Date: 20180124
  Transmission Date: 20180509
  Serious: Yes (Hospitalization)
  Sender: FDA-Public Use
  Company Number: ES-BAUSCH-BL-2018-001568

PATIENT
  Age: 61 Year
  Sex: Male

DRUGS (1)
  1. DICLOFENACO [Suspect]
     Active Substance: DICLOFENAC
     Indication: PAIN
     Dosage: DAILY
     Route: 048
     Dates: start: 201607, end: 201607

REACTIONS (1)
  - Upper gastrointestinal haemorrhage [Recovered/Resolved]

NARRATIVE: CASE EVENT DATE: 20160717
